FAERS Safety Report 5748072-6 (Version None)
Quarter: 2008Q2

REPORT INFORMATION
  Report Type: 
  Country: None (occurrence: None)
  Receive Date: 20080523
  Receipt Date: 20080513
  Transmission Date: 20081010
  Serious: Yes (Life-Threatening, Hospitalization)
  Sender: FDA-Public Use
  Company Number: FR-ROCHE-564226

PATIENT
  Age: 44 Year
  Sex: Male

DRUGS (9)
  1. TRETINOIN [Suspect]
     Dosage: STOPPED ON DAY 18
     Route: 065
  2. CYTARABINE [Suspect]
     Indication: WHITE BLOOD CELL COUNT INCREASED
     Dosage: DAYS 1-7
     Route: 065
  3. DAUNORUBICIN HCL [Suspect]
     Indication: WHITE BLOOD CELL COUNT INCREASED
     Dosage: DAYS 1-3
     Route: 065
  4. PIPERACILLIN [Concomitant]
     Route: 065
  5. TAZOBACTAM [Concomitant]
     Route: 065
  6. NETILMICIN SULFATE [Concomitant]
     Route: 065
  7. VANCOMYCIN [Concomitant]
     Route: 065
  8. AMPHOTERICIN B [Concomitant]
     Route: 065
  9. METRONIDAZOLE [Concomitant]

REACTIONS (2)
  - NECROTISING FASCIITIS [None]
  - STREPTOCOCCAL INFECTION [None]
